FAERS Safety Report 6207619-6 (Version None)
Quarter: 2009Q2

REPORT INFORMATION
  Report Type: 
  Country: None (occurrence: None)
  Receive Date: 20090528
  Receipt Date: 20090518
  Transmission Date: 20091009
  Serious: Yes (Hospitalization)
  Sender: FDA-Public Use
  Company Number: US-ABBOTT-09P-163-0574428-00

PATIENT
  Sex: Female
  Weight: 52.21 kg

DRUGS (2)
  1. SYNTHROID [Suspect]
     Indication: AUTOIMMUNE THYROIDITIS
     Dosage: MON/THURS 2 3/4 PILLS 3 PILLS T/W/F/S/S
     Route: 048
     Dates: start: 20080301
  2. SYNTHROID [Suspect]
     Route: 048
     Dates: start: 20080301

REACTIONS (8)
  - CARDIAC VALVE DISEASE [None]
  - EXTRASYSTOLES [None]
  - HEADACHE [None]
  - HEART RATE INCREASED [None]
  - HYPERHIDROSIS [None]
  - MYALGIA [None]
  - NAUSEA [None]
  - TREMOR [None]
